FAERS Safety Report 20744469 (Version 1)
Quarter: 2022Q2

REPORT INFORMATION
  Report Type: Spontaneous
  Country: JP (occurrence: JP)
  Receive Date: 20220425
  Receipt Date: 20220425
  Transmission Date: 20220721
  Serious: Yes (Hospitalization, Other)
  Sender: FDA-Public Use
  Company Number: JP-GLAXOSMITHKLINE-JP2022JPN066500

PATIENT
  Age: 40 Year
  Sex: Female

DRUGS (2)
  1. SUMATRIPTAN SUCCINATE [Suspect]
     Active Substance: SUMATRIPTAN SUCCINATE
     Indication: Migraine
     Dosage: UNK
  2. CALONAL [Concomitant]
     Active Substance: ACETAMINOPHEN
     Indication: Headache
     Dosage: UNK
     Route: 048

REACTIONS (12)
  - Lymphocytic hypophysitis [Unknown]
  - Vision blurred [Recovering/Resolving]
  - Visual field defect [Recovered/Resolved]
  - Pituitary enlargement [Recovering/Resolving]
  - Condition aggravated [Recovering/Resolving]
  - Hypopituitarism [Recovering/Resolving]
  - Autoimmune thyroiditis [Unknown]
  - Adrenal disorder [Recovered/Resolved]
  - Hypothyroidism [Not Recovered/Not Resolved]
  - Drug ineffective [Unknown]
  - Maternal exposure during pregnancy [Unknown]
  - Live birth [Unknown]
